FAERS Safety Report 23281338 (Version 1)
Quarter: 2023Q4

REPORT INFORMATION
  Report Type: Spontaneous
  Country: PT (occurrence: PT)
  Receive Date: 20231211
  Receipt Date: 20231211
  Transmission Date: 20240110
  Serious: Yes (Hospitalization, Other)
  Sender: FDA-Public Use
  Company Number: PT-GILEAD-2023-0653392

PATIENT
  Age: 38 Year
  Sex: Female

DRUGS (1)
  1. BIKTARVY [Suspect]
     Active Substance: BICTEGRAVIR SODIUM\EMTRICITABINE\TENOFOVIR ALAFENAMIDE FUMARATE
     Indication: HIV infection
     Dosage: UNK
     Route: 065

REACTIONS (7)
  - Meningitis cryptococcal [Unknown]
  - Pyrexia [Unknown]
  - Myalgia [Unknown]
  - Headache [Unknown]
  - Chills [Unknown]
  - Vomiting [Unknown]
  - Weight decreased [Unknown]
